FAERS Safety Report 9254828 (Version 1)
Quarter: 2013Q2

REPORT INFORMATION
  Report Type: Spontaneous
  Country: US (occurrence: None)
  Receive Date: 20130419
  Receipt Date: 20130419
  Transmission Date: 20140414
  Serious: Yes (Life-Threatening)
  Sender: FDA-Public Use
  Company Number: 549731

PATIENT
  Age: 1 Year
  Sex: Female
  Weight: 11.79 kg

DRUGS (1)
  1. HYLAND^S TEETHING TABLETS [Suspect]
     Indication: TEETHING
     Dosage: USING NEW BTTL FOR 1 WK

REACTIONS (7)
  - Dyspnoea [None]
  - Flushing [None]
  - Dry skin [None]
  - Pyrexia [None]
  - Poor quality sleep [None]
  - Sleep terror [None]
  - Croup infectious [None]
